FAERS Safety Report 21474523 (Version 3)
Quarter: 2023Q2

REPORT INFORMATION
  Report Type: Spontaneous
  Country: US (occurrence: US)
  Receive Date: 20221018
  Receipt Date: 20230522
  Transmission Date: 20230721
  Serious: Yes (Hospitalization, Other)
  Sender: FDA-Public Use
  Company Number: US-SA-SAC20221010001951

PATIENT

DRUGS (1)
  1. LARONIDASE [Suspect]
     Active Substance: LARONIDASE
     Indication: Mucopolysaccharidosis I
     Dosage: 6.032 UNK, QW
     Route: 041
     Dates: start: 20220929, end: 20221128

REACTIONS (9)
  - Mucosal inflammation [Recovering/Resolving]
  - Obstructive sleep apnoea syndrome [Recovering/Resolving]
  - Pericardial effusion [Recovering/Resolving]
  - Stem cell transplant [Recovered/Resolved]
  - Poor quality sleep [Unknown]
  - COVID-19 [Recovering/Resolving]
  - Urinary tract infection [Recovering/Resolving]
  - Candida infection [Unknown]
  - Catheter site infection [Recovering/Resolving]

NARRATIVE: CASE EVENT DATE: 20221001
